FAERS Safety Report 5225992-2 (Version None)
Quarter: 2007Q1

REPORT INFORMATION
  Report Type: 
  Country: None (occurrence: None)
  Receive Date: 20070129
  Receipt Date: 20060124
  Transmission Date: 20070707
  Serious: Yes (Death)
  Sender: FDA-Public Use
  Company Number: 2006VX000057

PATIENT
  Age: 50 Year
  Sex: Male

DRUGS (9)
  1. INFERGEN [Suspect]
     Indication: HEPATITIS C
     Dosage: 9 UG;TIW;SC
     Route: 058
     Dates: start: 20040715, end: 20051030
  2. LOMOTIL [Concomitant]
  3. PRILOSEC [Concomitant]
  4. CALCIUM [Concomitant]
  5. CIPROFLOXACIN [Concomitant]
  6. ATIVAN [Concomitant]
  7. CELEXA [Concomitant]
  8. LASIX [Concomitant]
  9. POTASSIUM CHLORIDE [Concomitant]

REACTIONS (3)
  - CHRONIC HEPATIC FAILURE [None]
  - DISEASE PROGRESSION [None]
  - HEPATITIS C [None]
